FAERS Safety Report 8804675 (Version 1)
Quarter: 2012Q4

REPORT INFORMATION
  Report Type: 
  Country: US (occurrence: US)
  Receive Date: 20120922
  Receipt Date: 20120922
  Transmission Date: 20130627
  Serious: Yes (Other)
  Sender: FDA-Public Use
  Company Number: US-BAYER-2012-097474

PATIENT
  Age: 82 Year
  Sex: Female
  Weight: 66 kg

DRUGS (8)
  1. BAYER ASPIRIN REGIMEN ADULT LOW STRENGTH [Suspect]
     Indication: PRODUCT USED FOR UNKNOWN INDICATION
     Dosage: 81 mg, BID
     Route: 048
     Dates: end: 2012
  2. IMIQUIMOD [Suspect]
     Indication: SKIN CANCER
     Dosage: UNK
     Route: 061
     Dates: start: 20120430, end: 201206
  3. DIGOXIN [Concomitant]
     Dosage: 0.125 mg, UNK
  4. GLUCOSAMINE W/CHONDROITIN SULFATE [Concomitant]
  5. RED YEAST RICE [Concomitant]
     Dosage: 600 mg, QID
  6. FISH OIL [Concomitant]
     Dosage: 1200 mg, UNK
  7. CALCIUM W/VITAMIN D NOS [Concomitant]
     Dosage: Daily dose 1200 mg
  8. PROPAFENONE [Concomitant]
     Dosage: 150 mg, BID

REACTIONS (10)
  - Burning sensation [Recovered/Resolved]
  - Application site discharge [Recovered/Resolved]
  - Wound secretion [Recovered/Resolved]
  - Pruritus [Recovered/Resolved]
  - Erythema [Recovered/Resolved]
  - Scab [Recovered/Resolved]
  - Gastrointestinal ulcer haemorrhage [None]
  - Blood urine present [None]
  - Application site discolouration [Not Recovered/Not Resolved]
  - Faeces discoloured [None]
